FAERS Safety Report 21215855 (Version 1)
Quarter: 2022Q3

REPORT INFORMATION
  Report Type: Spontaneous
  Country: US (occurrence: None)
  Receive Date: 20220815
  Receipt Date: 20220815
  Transmission Date: 20221027
  Serious: No
  Sender: FDA-Public Use
  Company Number: None

PATIENT
  Age: 53 Year
  Sex: Male
  Weight: 139.5 kg

DRUGS (7)
  1. PAXLOVID [Suspect]
     Active Substance: NIRMATRELVIR\RITONAVIR
     Indication: COVID-19
     Dosage: FREQUENCY : EVERY 12 HOURS;?
     Route: 048
     Dates: start: 20220729, end: 20220802
  2. COLCRYS [Concomitant]
     Active Substance: COLCHICINE
  3. METOPROLOL [Concomitant]
     Active Substance: METOPROLOL
  4. LOSARTAN [Concomitant]
     Active Substance: LOSARTAN
  5. Alupurinol [Concomitant]
  6. TRAMADOL [Concomitant]
     Active Substance: TRAMADOL
  7. MELOXICAM [Concomitant]
     Active Substance: MELOXICAM

REACTIONS (1)
  - COVID-19 [None]

NARRATIVE: CASE EVENT DATE: 20220812
